FAERS Safety Report 21099009 (Version 1)
Quarter: 2022Q3

REPORT INFORMATION
  Report Type: Spontaneous
  Country: CA (occurrence: CA)
  Receive Date: 20220719
  Receipt Date: 20220719
  Transmission Date: 20221027
  Serious: Yes (Hospitalization)
  Sender: FDA-Public Use
  Company Number: CA-PFIZER INC-202200962393

PATIENT
  Age: 46 Year
  Sex: Male

DRUGS (6)
  1. FRAGMIN [Suspect]
     Active Substance: DALTEPARIN SODIUM
     Indication: Pulmonary embolism
     Dosage: 12500 IU, 1X/DAY
     Route: 058
  2. FRAGMIN [Suspect]
     Active Substance: DALTEPARIN SODIUM
     Indication: Neoplasm malignant
  3. FRAGMIN [Suspect]
     Active Substance: DALTEPARIN SODIUM
     Indication: Deep vein thrombosis
  4. BECLOMETHASONE [Concomitant]
     Active Substance: BECLOMETHASONE
  5. LASIX [Concomitant]
     Active Substance: FUROSEMIDE
  6. STIVARGA [Concomitant]
     Active Substance: REGORAFENIB

REACTIONS (2)
  - Haemoglobin decreased [Recovered/Resolved]
  - Stoma site haemorrhage [Recovered/Resolved]
